FAERS Safety Report 4898393-4 (Version None)
Quarter: 2006Q1

REPORT INFORMATION
  Report Type: 
  Country: None (occurrence: None)
  Receive Date: 20060202
  Receipt Date: 20051020
  Transmission Date: 20060701
  Serious: Yes (Hospitalization)
  Sender: FDA-Public Use
  Company Number: 2005PK01937

PATIENT
  Age: 24437 Day
  Sex: Female

DRUGS (3)
  1. ARIMIDEX [Suspect]
     Indication: BREAST CANCER FEMALE
     Route: 048
     Dates: start: 20050420
  2. SELOKEN [Concomitant]
     Indication: HYPERTENSION
     Route: 048
  3. MODURETIC 5-50 [Concomitant]
     Indication: HYPERTENSION
     Route: 048

REACTIONS (7)
  - COMPRESSION FRACTURE [None]
  - INTERVERTEBRAL DISC DISORDER [None]
  - INTERVERTEBRAL DISC PROTRUSION [None]
  - OSTEOCHONDROSIS [None]
  - OSTEOPOROTIC FRACTURE [None]
  - SCIATICA [None]
  - SPINAL CORD COMPRESSION [None]
